FAERS Safety Report 24925004 (Version 1)
Quarter: 2025Q1

REPORT INFORMATION
  Report Type: Report from Study
  Country: US (occurrence: US)
  Receive Date: 20250204
  Receipt Date: 20250204
  Transmission Date: 20250409
  Serious: No
  Sender: EXELIXIS
  Company Number: US-EXELIXIS-CABO-24077503

PATIENT
  Sex: Male

DRUGS (5)
  1. CABOMETYX [Suspect]
     Active Substance: CABOZANTINIB S-MALATE
     Indication: Renal cell carcinoma
     Dosage: 60 MG, QD
     Dates: start: 20240501, end: 20240629
  2. PREDNISONE [Concomitant]
     Active Substance: PREDNISONE
  3. ROBITUSSIN (GUAIFENESIN) [Concomitant]
     Active Substance: GUAIFENESIN
  4. TYLENOL [Concomitant]
     Active Substance: ACETAMINOPHEN
  5. LOPERAMIDE [Concomitant]
     Active Substance: LOPERAMIDE

REACTIONS (14)
  - Myalgia [Unknown]
  - Taste disorder [Recovering/Resolving]
  - Acne [Not Recovered/Not Resolved]
  - Mouth ulceration [Recovering/Resolving]
  - Tongue ulceration [Recovering/Resolving]
  - Blood pressure increased [Recovered/Resolved]
  - Nausea [Recovered/Resolved]
  - Decreased appetite [Not Recovered/Not Resolved]
  - Weight decreased [Not Recovered/Not Resolved]
  - Vomiting [Recovered/Resolved]
  - Nasal ulcer [Recovering/Resolving]
  - Arthralgia [Recovering/Resolving]
  - Cough [Recovered/Resolved]
  - Diarrhoea [Not Recovered/Not Resolved]
